FAERS Safety Report 17572467 (Version 31)
Quarter: 2025Q3

REPORT INFORMATION
  Report Type: Report from Study
  Country: CO (occurrence: CO)
  Receive Date: 20200323
  Receipt Date: 20250820
  Transmission Date: 20251021
  Serious: Yes (Hospitalization, Other)
  Sender: TAKEDA
  Company Number: CO-TAKEDA-2020TUS014240

PATIENT
  Age: 66 Year
  Sex: Female
  Weight: 91 kg

DRUGS (3)
  1. VEDOLIZUMAB [Suspect]
     Active Substance: VEDOLIZUMAB
     Indication: Crohn^s disease
     Dosage: 300 MILLIGRAM, Q4WEEKS
     Dates: start: 20171005
  2. VEDOLIZUMAB [Suspect]
     Active Substance: VEDOLIZUMAB
     Dosage: 300 MILLIGRAM, Q6WEEKS
  3. VEDOLIZUMAB [Suspect]
     Active Substance: VEDOLIZUMAB
     Dosage: 300 MILLIGRAM, Q4WEEKS

REACTIONS (18)
  - Pneumonia [Recovering/Resolving]
  - Cataract [Unknown]
  - Anal fistula infection [Unknown]
  - Abdominal pain [Unknown]
  - Erythema [Unknown]
  - Drug ineffective [Unknown]
  - Myalgia [Recovered/Resolved]
  - Viral infection [Unknown]
  - Pyrexia [Recovered/Resolved]
  - Treatment noncompliance [Unknown]
  - Emotional distress [Unknown]
  - Weight increased [Unknown]
  - Depression [Unknown]
  - Cellulitis [Not Recovered/Not Resolved]
  - Diarrhoea [Unknown]
  - Product availability issue [Unknown]
  - Decreased appetite [Unknown]
  - Depressed mood [Unknown]

NARRATIVE: CASE EVENT DATE: 20200304
